FAERS Safety Report 16941146 (Version 2)
Quarter: 2019Q4

REPORT INFORMATION
  Report Type: Report from Study
  Country: US (occurrence: US)
  Receive Date: 20191021
  Receipt Date: 20191022
  Transmission Date: 20200122
  Serious: Yes (Other)
  Sender: FDA-Public Use
  Company Number: US-PFIZER INC-2019445627

PATIENT

DRUGS (2)
  1. DOXYCYCLINE HYCLATE. [Suspect]
     Active Substance: DOXYCYCLINE HYCLATE
     Indication: SCLEROTHERAPY
     Dosage: UNK (100 MG OF POWDER WITH 5 ML OF STERILE WATER AND 5 ML OF WATER-SOLUBLE CONTRAST MEDIUM)
  2. BUPIVICAINE [Concomitant]
     Active Substance: BUPIVACAINE
     Indication: GENERAL ANAESTHESIA
     Dosage: UNK (INTRALESIONAL INJECTION)
     Route: 026

REACTIONS (1)
  - Horner^s syndrome [Recovering/Resolving]
